FAERS Safety Report 7285967-9 (Version None)
Quarter: 2011Q1

REPORT INFORMATION
  Report Type: 
  Country: None (occurrence: None)
  Receive Date: 20110210
  Receipt Date: 20110201
  Transmission Date: 20110831
  Serious: Yes (Hospitalization)
  Sender: FDA-Public Use
  Company Number: US-ASTRAZENECA-2010SE55910

PATIENT
  Age: 83 Year
  Sex: Female
  Weight: 78 kg

DRUGS (2)
  1. ARIMIDEX [Suspect]
     Indication: BREAST CANCER
     Route: 048
     Dates: start: 20050101, end: 20101101
  2. METOPROLOL [Suspect]
     Route: 048

REACTIONS (31)
  - HYPERGLYCAEMIA [None]
  - ADVERSE EVENT [None]
  - AMNESIA [None]
  - HYPOAESTHESIA [None]
  - ABDOMINAL DISCOMFORT [None]
  - DEPRESSION [None]
  - FATIGUE [None]
  - RASH [None]
  - JOINT SWELLING [None]
  - BLOOD PRESSURE INCREASED [None]
  - HEADACHE [None]
  - DIZZINESS [None]
  - LETHARGY [None]
  - DYSPHAGIA [None]
  - HYPERTENSION [None]
  - OEDEMA PERIPHERAL [None]
  - OSTEOPOROSIS [None]
  - PRESYNCOPE [None]
  - DYSPHONIA [None]
  - GAIT DISTURBANCE [None]
  - MUSCULAR WEAKNESS [None]
  - BONE PAIN [None]
  - CEREBROVASCULAR ACCIDENT [None]
  - COUGH [None]
  - ABDOMINAL PAIN [None]
  - DRUG DOSE OMISSION [None]
  - APHASIA [None]
  - BREAST PAIN [None]
  - ARTHRITIS [None]
  - CONSTIPATION [None]
  - DIARRHOEA [None]
